FAERS Safety Report 8520055-2 (Version None)
Quarter: 2012Q2

REPORT INFORMATION
  Report Type: 
  Country: None (occurrence: None)
  Receive Date: 20120406
  Receipt Date: 20100902
  Transmission Date: 20120825
  Serious: Yes (Other)
  Sender: FDA-Public Use
  Company Number: PHHY2010US59319

PATIENT

DRUGS (1)
  1. TASIGNA [Suspect]

REACTIONS (2)
  - RENAL DISORDER [None]
  - RENAL FAILURE [None]
